FAERS Safety Report 24416144 (Version 1)
Quarter: 2024Q4

REPORT INFORMATION
  Report Type: Spontaneous
  Country: US (occurrence: None)
  Receive Date: 20241008
  Receipt Date: 20241008
  Transmission Date: 20250114
  Serious: Yes (Death, Life-Threatening, Hospitalization)
  Sender: Public
  Company Number: None

PATIENT
  Age: 85 Year
  Sex: Female
  Weight: 69.75 kg

DRUGS (5)
  1. AMIODARONE HYDROCHLORIDE [Suspect]
     Active Substance: AMIODARONE HYDROCHLORIDE
     Indication: Atrial fibrillation
     Dosage: OTHER QUANTITY : 1 TABLET(S);?FREQUENCY : DAILY;?
     Route: 048
  2. HYDROCHLOROTHIAZIDE\LOSARTAN [Concomitant]
     Active Substance: HYDROCHLOROTHIAZIDE\LOSARTAN
  3. METOPROLOL [Concomitant]
     Active Substance: METOPROLOL
  4. XARELTO [Concomitant]
  5. Multivitamin [Concomitant]

REACTIONS (10)
  - Urinary tract infection [None]
  - Pulmonary mass [None]
  - Hepatitis [None]
  - Hepatomegaly [None]
  - Lung opacity [None]
  - Dyspnoea [None]
  - Oxygen saturation decreased [None]
  - Blood pressure diastolic increased [None]
  - Blood pressure systolic decreased [None]
  - Toxicity to various agents [None]

NARRATIVE: CASE EVENT DATE: 20240708
